FAERS Safety Report 24355242 (Version 1)
Quarter: 2024Q3

REPORT INFORMATION
  Report Type: Spontaneous
  Country: JP (occurrence: JP)
  Receive Date: 20240924
  Receipt Date: 20240924
  Transmission Date: 20241016
  Serious: Yes (Other)
  Sender: GENMAB
  Company Number: JP-GENMAB-2024-03405

PATIENT
  Age: 84 Year
  Sex: Female

DRUGS (1)
  1. EPKINLY [Suspect]
     Active Substance: EPCORITAMAB-BYSP
     Indication: Diffuse large B-cell lymphoma refractory
     Dosage: UNK, ADMINISTERED UP TO CYCLE 10
     Route: 065

REACTIONS (5)
  - Hypogammaglobulinaemia [Unknown]
  - Diffuse large B-cell lymphoma refractory [Unknown]
  - Influenza [Unknown]
  - Neoplasm progression [Unknown]
  - Neutrophil count decreased [Unknown]
